FAERS Safety Report 23158944 (Version 1)
Quarter: 2023Q4

REPORT INFORMATION
  Report Type: Spontaneous
  Country: AU (occurrence: None)
  Receive Date: 20231108
  Receipt Date: 20231108
  Transmission Date: 20240110
  Serious: Yes (Other)
  Sender: FDA-Public Use
  Company Number: 2023A252222

PATIENT
  Age: 75 Year
  Sex: Male

DRUGS (40)
  1. ESOMEPRAZOLE [Suspect]
     Active Substance: ESOMEPRAZOLE
     Route: 048
  2. METOPROLOL TARTRATE [Suspect]
     Active Substance: METOPROLOL TARTRATE
  3. ACTRAPID [Suspect]
     Active Substance: INSULIN HUMAN
  4. CALCIUM CHLORIDE [Suspect]
     Active Substance: CALCIUM CHLORIDE
  5. CALCIUM GLUCONATE [Suspect]
     Active Substance: CALCIUM GLUCONATE
  6. DEXTROSE [Suspect]
     Active Substance: DEXTROSE\DEXTROSE MONOHYDRATE
  7. MAGNESIUM SULFATE [Suspect]
     Active Substance: MAGNESIUM SULFATE\MAGNESIUM SULFATE HEPTAHYDRATE
  8. METARAMINOL [Suspect]
     Active Substance: METARAMINOL
  9. MOVICOL [Suspect]
     Active Substance: POLYETHYLENE GLYCOL 3350\POTASSIUM CHLORIDE\SODIUM BICARBONATE\SODIUM CHLORIDE
  10. POTASSIUM PHOSPHATE, MONOBASIC [Suspect]
     Active Substance: POTASSIUM PHOSPHATE, MONOBASIC
  11. ALBUTEROL [Suspect]
     Active Substance: ALBUTEROL
  12. PIPERACILLIN SODIUM\TAZOBACTAM SODIUM [Suspect]
     Active Substance: PIPERACILLIN SODIUM\TAZOBACTAM SODIUM
  13. THIAMINE [Suspect]
     Active Substance: THIAMINE
  14. ACYCLOVIR [Suspect]
     Active Substance: ACYCLOVIR
  15. AMIODARONE HYDROCHLORIDE [Suspect]
     Active Substance: AMIODARONE HYDROCHLORIDE
  16. ATOVAQUONE [Suspect]
     Active Substance: ATOVAQUONE
  17. AZITHROMYCIN [Suspect]
     Active Substance: AZITHROMYCIN
  18. CEFTRIAXONE [Suspect]
     Active Substance: CEFTRIAXONE\CEFTRIAXONE SODIUM
  19. DEXAMETHASONE [Suspect]
     Active Substance: DEXAMETHASONE
  20. DIGOXIN [Suspect]
     Active Substance: DIGOXIN
  21. ENOXAPARIN SODIUM [Suspect]
     Active Substance: ENOXAPARIN SODIUM
  22. FENTANYL [Suspect]
     Active Substance: FENTANYL\FENTANYL CITRATE
  23. FUROSEMIDE [Suspect]
     Active Substance: FUROSEMIDE
  24. HYDROCORTISONE [Suspect]
     Active Substance: HYDROCORTISONE
  25. IPRATROPIUM BROMIDE [Suspect]
     Active Substance: IPRATROPIUM BROMIDE\IPRATROPIUM BROMIDE ANHYDROUS
  26. KETAMINE [Suspect]
     Active Substance: KETAMINE
  27. METOCLOPRAMIDE [Suspect]
     Active Substance: METOCLOPRAMIDE
  28. MIDAZOLAM [Suspect]
     Active Substance: MIDAZOLAM
  29. MORPHINE [Suspect]
     Active Substance: MORPHINE
  30. NITRIC OXIDE [Suspect]
     Active Substance: NITRIC OXIDE
  31. NOREPINEPHRINE [Suspect]
     Active Substance: NOREPINEPHRINE
  32. ACETAMINOPHEN [Suspect]
     Active Substance: ACETAMINOPHEN
  33. POTASSIUM CHLORIDE [Suspect]
     Active Substance: POTASSIUM CHLORIDE
  34. PROPOFOL [Suspect]
     Active Substance: PROPOFOL
  35. REMDESIVIR [Suspect]
     Active Substance: REMDESIVIR
  36. ROCURONIUM BROMIDE [Suspect]
     Active Substance: ROCURONIUM BROMIDE
  37. SENNOSIDES [Suspect]
     Active Substance: SENNOSIDES
  38. AMINO ACIDS\CARBOHYDRATES\ELECTROLYTES NOS\VITAMINS [Suspect]
     Active Substance: AMINO ACIDS\CARBOHYDRATES\ELECTROLYTES NOS\VITAMINS
  39. SULFAMETHOXAZOLE\TRIMETHOPRIM [Suspect]
     Active Substance: SULFAMETHOXAZOLE\TRIMETHOPRIM
  40. VANCOMYCIN [Suspect]
     Active Substance: VANCOMYCIN

REACTIONS (2)
  - Respiratory failure [Unknown]
  - Condition aggravated [Unknown]
